FAERS Safety Report 8130026-6 (Version None)
Quarter: 2012Q1

REPORT INFORMATION
  Report Type: 
  Country: None (occurrence: None)
  Receive Date: 20120210
  Receipt Date: 20120201
  Transmission Date: 20120608
  Serious: Yes (Other)
  Sender: FDA-Public Use
  Company Number: US-ABBOTT-12P-163-0900280-00

PATIENT
  Sex: Female
  Weight: 96.248 kg

DRUGS (8)
  1. HUMIRA [Suspect]
     Indication: PSORIATIC ARTHROPATHY
     Dates: start: 20111010, end: 20111101
  2. HUMIRA [Suspect]
     Dates: start: 20110101
  3. POTASSIUM CHLORIDE [Concomitant]
     Indication: MINERAL SUPPLEMENTATION
     Dosage: 10MEQ TO 20MEQ, DAILY, AS NEEDED
  4. ARAVA [Concomitant]
     Indication: PSORIATIC ARTHROPATHY
  5. PREDNISONE [Concomitant]
     Indication: PSORIATIC ARTHROPATHY
  6. FLEXERIL [Concomitant]
     Indication: MUSCLE SPASMS
     Dosage: AT BEDTIME
  7. SYNTHROID [Concomitant]
     Indication: RADIOTHERAPY TO THYROID
  8. FUROSEMIDE [Concomitant]
     Indication: FLUID RETENTION
     Dosage: 40MG TO 80MG, DAILY, AS NEEDED

REACTIONS (9)
  - OSTEOARTHRITIS [None]
  - FALL [None]
  - LOWER LIMB FRACTURE [None]
  - FACE INJURY [None]
  - ARTHRALGIA [None]
  - IMPAIRED HEALING [None]
  - MENISCUS LESION [None]
  - POST PROCEDURAL SWELLING [None]
  - FIBROMYALGIA [None]
